FAERS Safety Report 5394590-2 (Version None)
Quarter: 2007Q3

REPORT INFORMATION
  Report Type: 
  Country: None (occurrence: None)
  Receive Date: 20070723
  Receipt Date: 20070719
  Transmission Date: 20080115
  Serious: Yes (Other)
  Sender: FDA-Public Use
  Company Number: US-SHR-US-2007-026858

PATIENT
  Age: 40 Year
  Sex: Female
  Weight: 104 kg

DRUGS (1)
  1. MIRENA [Suspect]
     Indication: CONTRACEPTION
     Dosage: 20 A?G/DAY, CONT
     Route: 015
     Dates: start: 20070601

REACTIONS (8)
  - ABDOMINAL PAIN LOWER [None]
  - AMNESIA [None]
  - BACK PAIN [None]
  - GENITAL HAEMORRHAGE [None]
  - LIBIDO DECREASED [None]
  - MOOD ALTERED [None]
  - VAGINAL DISCHARGE [None]
  - WEIGHT INCREASED [None]
